FAERS Safety Report 23056864 (Version 4)
Quarter: 2023Q4

REPORT INFORMATION
  Report Type: Spontaneous
  Country: ES (occurrence: ES)
  Receive Date: 20231012
  Receipt Date: 20231218
  Transmission Date: 20240109
  Serious: Yes (Hospitalization, Other)
  Sender: FDA-Public Use
  Company Number: ES-ELI_LILLY_AND_COMPANY-ES202310001944

PATIENT
  Age: 64 Year
  Sex: Female

DRUGS (3)
  1. TERIPARATIDE [Suspect]
     Active Substance: TERIPARATIDE
     Indication: Spinal fracture
     Dosage: UNK UNK, UNKNOWN
     Route: 065
  2. TERIPARATIDE [Suspect]
     Active Substance: TERIPARATIDE
     Dosage: UNK UNK, UNKNOWN
     Route: 065
  3. ASPIRIN [Concomitant]
     Active Substance: ASPIRIN
     Indication: Product used for unknown indication

REACTIONS (7)
  - Bacterial abdominal infection [Recovered/Resolved]
  - Loss of consciousness [Recovering/Resolving]
  - Pulmonary embolism [Unknown]
  - Thrombosis [Unknown]
  - COVID-19 [Unknown]
  - Off label use [Unknown]
  - Arthralgia [Recovering/Resolving]
